FAERS Safety Report 4638736-X (Version None)
Quarter: 2005Q2

REPORT INFORMATION
  Report Type: 
  Country: None (occurrence: None)
  Receive Date: 20050418
  Receipt Date: 20050418
  Transmission Date: 20051028
  Serious: No
  Sender: FDA-Public Use
  Company Number: None

PATIENT
  Sex: Male
  Weight: 73.7 kg

DRUGS (4)
  1. CARBOPLATIN [Suspect]
     Indication: OESOPHAGEAL ADENOCARCINOMA
     Dates: start: 20041019
  2. TAXOL [Suspect]
  3. FLUOROURACIL [Suspect]
  4. RADIATION [Suspect]

REACTIONS (18)
  - ABSCESS [None]
  - ANASTOMOTIC LEAK [None]
  - DIARRHOEA [None]
  - DYSPNOEA [None]
  - FISTULA [None]
  - GASTROINTESTINAL DISORDER [None]
  - HAEMATEMESIS [None]
  - HAEMOPTYSIS [None]
  - INFLAMMATION [None]
  - ISCHAEMIA [None]
  - OBSTRUCTION [None]
  - OBSTRUCTIVE AIRWAYS DISORDER [None]
  - OESOPHAGEAL DISORDER [None]
  - OPERATIVE HAEMORRHAGE [None]
  - PNEUMONIA [None]
  - PROCEDURAL COMPLICATION [None]
  - RADIATION INJURY [None]
  - WEIGHT DECREASED [None]
